FAERS Safety Report 18280260 (Version 2)
Quarter: 2020Q3

REPORT INFORMATION
  Report Type: Report from Study
  Country: US (occurrence: US)
  Receive Date: 20200917
  Receipt Date: 20200929
  Transmission Date: 20201103
  Serious: Yes (Other)
  Sender: FDA-Public Use
  Company Number: US-NOVOPROD-753456

PATIENT
  Age: 56 Year
  Sex: Male
  Weight: 99.79 kg

DRUGS (2)
  1. TRESIBA [Suspect]
     Active Substance: INSULIN DEGLUDEC
     Indication: TYPE 2 DIABETES MELLITUS
     Dosage: 40 IU IN THE MORNING
     Route: 058
     Dates: start: 2017
  2. POTASSIUM [Concomitant]
     Active Substance: POTASSIUM
     Indication: PRODUCT USED FOR UNKNOWN INDICATION
     Dosage: UNK
     Route: 065

REACTIONS (2)
  - Swelling [Recovered/Resolved]
  - Heart valve incompetence [Unknown]

NARRATIVE: CASE EVENT DATE: 2018
